FAERS Safety Report 16700304 (Version 1)
Quarter: 2019Q3

REPORT INFORMATION
  Report Type: Spontaneous
  Country: US (occurrence: US)
  Receive Date: 20190814
  Receipt Date: 20190814
  Transmission Date: 20191004
  Serious: Yes (Hospitalization)
  Sender: FDA-Public Use
  Company Number: US-ZYDUS-039696

PATIENT
  Age: 52 Year
  Sex: Male

DRUGS (4)
  1. RISPERIDONE. [Suspect]
     Active Substance: RISPERIDONE
     Indication: SCHIZOPHRENIA
     Route: 065
  2. CLOZAPINE. [Suspect]
     Active Substance: CLOZAPINE
     Indication: PRODUCT USED FOR UNKNOWN INDICATION
     Route: 065
  3. AMLODIPINE [Concomitant]
     Active Substance: AMLODIPINE BESYLATE
     Indication: ESSENTIAL HYPERTENSION
     Route: 065
  4. PROPRANOLOL [Concomitant]
     Active Substance: PROPRANOLOL HYDROCHLORIDE
     Indication: TACHYCARDIA
     Route: 065

REACTIONS (10)
  - Social avoidant behaviour [Recovering/Resolving]
  - Hallucination, auditory [Recovering/Resolving]
  - Loss of personal independence in daily activities [Recovering/Resolving]
  - Catatonia [Recovering/Resolving]
  - Myocardial necrosis marker increased [Recovering/Resolving]
  - Confusional state [Recovering/Resolving]
  - Troponin increased [Recovering/Resolving]
  - Enuresis [Recovering/Resolving]
  - Blood creatine phosphokinase increased [Recovering/Resolving]
  - Abnormal behaviour [Recovering/Resolving]
